FAERS Safety Report 17579642 (Version 1)
Quarter: 2020Q1

REPORT INFORMATION
  Report Type: Report from Study
  Country: None (occurrence: US)
  Receive Date: 20200325
  Receipt Date: 20200325
  Transmission Date: 20200409
  Serious: Yes (Death, Hospitalization)
  Sender: FDA-Public Use
  Company Number: US-INSMED, INC.-US-INS-19-02376

PATIENT
  Age: 53 Year
  Sex: Male

DRUGS (3)
  1. ARIKAYCE [Suspect]
     Active Substance: AMIKACIN
     Route: 055
     Dates: start: 20190813, end: 20191103
  2. ARIKAYCE [Suspect]
     Active Substance: AMIKACIN
     Indication: MYCOBACTERIAL INFECTION
     Route: 055
     Dates: start: 20190705, end: 20190801
  3. LAMIRA NEBULIZER SYSTEM [Suspect]
     Active Substance: DEVICE

REACTIONS (5)
  - Dyspnoea [Recovering/Resolving]
  - Hospice care [Unknown]
  - Therapy cessation [Unknown]
  - Dysphonia [Not Recovered/Not Resolved]
  - Death [Fatal]

NARRATIVE: CASE EVENT DATE: 20190801
